FAERS Safety Report 8257494-3 (Version None)
Quarter: 2012Q2

REPORT INFORMATION
  Report Type: 
  Country: None (occurrence: None)
  Receive Date: 20120403
  Receipt Date: 20110402
  Transmission Date: 20120825
  Serious: Yes (Other)
  Sender: FDA-Public Use
  Company Number: PHHY2011US25032

PATIENT
  Sex: Female

DRUGS (6)
  1. HYPROLOSE [Concomitant]
     Indication: PAIN
     Route: 048
  2. LIDODERM [Concomitant]
     Indication: PAIN
  3. PROTONIX [Concomitant]
     Indication: CHRONIC OBSTRUCTIVE PULMONARY DISEASE
     Route: 048
  4. GILENYA [Suspect]
     Indication: RELAPSING-REMITTING MULTIPLE SCLEROSIS
     Dosage: 0.5 MG, QD
     Route: 048
     Dates: start: 20110318
  5. ALBUTEROL [Concomitant]
     Indication: CHRONIC OBSTRUCTIVE PULMONARY DISEASE
     Route: 045
  6. SYNTHROID [Concomitant]
     Indication: HYPOTHYROIDIC GOITRE

REACTIONS (13)
  - CHEST DISCOMFORT [None]
  - BLOOD PRESSURE DECREASED [None]
  - DIZZINESS [None]
  - ERYTHEMA [None]
  - OEDEMA PERIPHERAL [None]
  - UPPER RESPIRATORY TRACT INFECTION [None]
  - PALPITATIONS [None]
  - BODY TEMPERATURE INCREASED [None]
  - EAR DISORDER [None]
  - HEART RATE DECREASED [None]
  - NAUSEA [None]
  - URINARY TRACT INFECTION [None]
  - ORAL FUNGAL INFECTION [None]
